FAERS Safety Report 9844831 (Version 1)
Quarter: 2014Q1

REPORT INFORMATION
  Report Type: Spontaneous
  Country: DE (occurrence: None)
  Receive Date: 20140122
  Receipt Date: 20140122
  Transmission Date: 20141002
  Serious: Yes (Hospitalization)
  Sender: FDA-Public Use
  Company Number: AXC-2014-000047

PATIENT
  Age: 50 Year
  Sex: Male

DRUGS (2)
  1. PYLERA [Suspect]
     Indication: HELICOBACTER INFECTION
     Dosage: 3 DF, QID, ORAL
     Route: 048
     Dates: start: 20140102, end: 20140112
  2. OMEPRAZOLE (OMEPRAZOLE) UNKNOWN [Concomitant]

REACTIONS (6)
  - Abdominal pain upper [None]
  - Faeces discoloured [None]
  - Proctalgia [None]
  - Dizziness [None]
  - Fatigue [None]
  - Malaise [None]
